FAERS Safety Report 23309356 (Version 3)
Quarter: 2024Q1

REPORT INFORMATION
  Report Type: Report from Study
  Country: TR (occurrence: TR)
  Receive Date: 20231218
  Receipt Date: 20240305
  Transmission Date: 20240409
  Serious: Yes (Hospitalization)
  Sender: FDA-Public Use
  Company Number: TR-JNJFOC-20231229500

PATIENT
  Age: 32 Year
  Sex: Male

DRUGS (5)
  1. EPOPROSTENOL SODIUM [Suspect]
     Active Substance: EPOPROSTENOL SODIUM
     Indication: Product used for unknown indication
     Dosage: DOSAGE: 2.9 ML/H, CONCENTRATION: 45000 NG
     Route: 042
     Dates: start: 20230307
  2. FUROSEMIDE [Concomitant]
     Active Substance: FUROSEMIDE
  3. OPSUMIT [Concomitant]
     Active Substance: MACITENTAN
  4. DEPARTON [Concomitant]
  5. SPIRONOLACTONE [Concomitant]
     Active Substance: SPIRONOLACTONE

REACTIONS (3)
  - Device breakage [Recovered/Resolved]
  - Device occlusion [Unknown]
  - Underdose [Unknown]

NARRATIVE: CASE EVENT DATE: 20231208
